FAERS Safety Report 6046410-0 (Version None)
Quarter: 2009Q1

REPORT INFORMATION
  Report Type: 
  Country: None (occurrence: None)
  Receive Date: 20090122
  Receipt Date: 20090115
  Transmission Date: 20090719
  Serious: Yes (Other)
  Sender: FDA-Public Use
  Company Number: CA-ASTRAZENECA-2009UW01484

PATIENT
  Age: 73 Year
  Sex: Female
  Weight: 58.1 kg

DRUGS (3)
  1. NEXIUM [Suspect]
     Route: 048
     Dates: start: 20060101
  2. CRESTOR [Concomitant]
     Route: 048
  3. SINGULAIR [Concomitant]
     Route: 048

REACTIONS (2)
  - DYSPEPSIA [None]
  - GASTRIC POLYPS [None]
